FAERS Safety Report 13122422 (Version 3)
Quarter: 2017Q1

REPORT INFORMATION
  Report Type: Spontaneous
  Country: US (occurrence: US)
  Receive Date: 20170117
  Receipt Date: 20170309
  Transmission Date: 20170428
  Serious: Yes (Other)
  Sender: FDA-Public Use
  Company Number: US-009507513-1701USA006687

PATIENT
  Sex: Female

DRUGS (3)
  1. ZEPATIER [Suspect]
     Active Substance: ELBASVIR\GRAZOPREVIR
     Dosage: HALF TABLET IN THE AFTERNOON
     Route: 048
  2. ZEPATIER [Suspect]
     Active Substance: ELBASVIR\GRAZOPREVIR
     Indication: HEPATITIS C
     Dosage: 1 DF, QD
     Route: 048
     Dates: start: 20161216
  3. ZEPATIER [Suspect]
     Active Substance: ELBASVIR\GRAZOPREVIR
     Dosage: HALF TABLET IN THE MORNING
     Route: 048

REACTIONS (6)
  - Thermal burn [Unknown]
  - Vomiting [Unknown]
  - Intentional product misuse [Unknown]
  - Haematemesis [Unknown]
  - Constipation [Unknown]
  - Nausea [Unknown]
